FAERS Safety Report 24235421 (Version 1)
Quarter: 2024Q3

REPORT INFORMATION
  Report Type: Report from Study
  Country: US (occurrence: US)
  Receive Date: 20240821
  Receipt Date: 20240821
  Transmission Date: 20241017
  Serious: Yes (Other)
  Sender: ABBVIE
  Company Number: US-ABBVIE-5391481

PATIENT
  Age: 56 Year
  Sex: Male

DRUGS (5)
  1. SKYRIZI [Suspect]
     Active Substance: RISANKIZUMAB-RZAA
     Indication: Psoriasis
     Dosage: STRENGTH: 150 MG
     Route: 058
     Dates: start: 20220811
  2. GABAPENTIN [Concomitant]
     Active Substance: GABAPENTIN
     Indication: Sciatica
  3. OXYCODONE [Concomitant]
     Active Substance: OXYCODONE
     Indication: Back pain
  4. REVLIMID [Concomitant]
     Active Substance: LENALIDOMIDE
     Indication: Plasma cell myeloma
  5. ZOMETA [Concomitant]
     Active Substance: ZOLEDRONIC ACID
     Indication: Bone growth stimulation

REACTIONS (4)
  - Spinal fusion surgery [Unknown]
  - Spinal stenosis [Unknown]
  - Radiculopathy [Unknown]
  - Sciatica [Not Recovered/Not Resolved]

NARRATIVE: CASE EVENT DATE: 20230301
